FAERS Safety Report 19428046 (Version 2)
Quarter: 2024Q2

REPORT INFORMATION
  Report Type: Report from Study
  Country: US (occurrence: US)
  Receive Date: 20210616
  Receipt Date: 20240522
  Transmission Date: 20240716
  Serious: Yes (Other)
  Sender: FDA-Public Use
  Company Number: US-AUROBINDO-AUR-APL-2021-024624

PATIENT
  Age: 49 Year
  Sex: Male

DRUGS (9)
  1. CAPECITABINE [Suspect]
     Active Substance: CAPECITABINE
     Indication: Adenocarcinoma gastric
     Dosage: UNK
     Route: 065
  2. CISPLATIN [Suspect]
     Active Substance: CISPLATIN
     Indication: Adenocarcinoma gastric
     Dosage: UNK
     Route: 065
  3. TRASTUZUMAB [Suspect]
     Active Substance: TRASTUZUMAB
     Indication: Adenocarcinoma gastric
     Dosage: UNK
     Route: 065
  4. PACLITAXEL [Suspect]
     Active Substance: PACLITAXEL
     Indication: Adenocarcinoma gastric
     Dosage: 70 MILLIGRAM/SQ. METER (CYCLES 3-6)
     Route: 065
  5. PACLITAXEL [Suspect]
     Active Substance: PACLITAXEL
     Dosage: 60 MILLIGRAM/SQ. METER (CYCLE 7)
     Route: 065
  6. PACLITAXEL [Suspect]
     Active Substance: PACLITAXEL
     Dosage: 80 MILLIGRAM/SQ. METER (ON DAY 1, 8 AND 15 OF A 28-DAY CYCLE)
     Route: 065
  7. RAMUCIRUMAB [Suspect]
     Active Substance: RAMUCIRUMAB
     Indication: Adenocarcinoma gastric
     Dosage: UNK UNK, RECEIVED SEVEN CYCLES
     Route: 065
  8. RAMUCIRUMAB [Suspect]
     Active Substance: RAMUCIRUMAB
     Dosage: 8 MILLIGRAM/KILOGRAM
     Route: 065
  9. OXALIPLATIN [Suspect]
     Active Substance: OXALIPLATIN
     Indication: Adenocarcinoma gastric
     Dosage: UNK
     Route: 065

REACTIONS (1)
  - Polyneuropathy [Recovered/Resolved]
